FAERS Safety Report 8448181-7 (Version None)
Quarter: 2012Q2

REPORT INFORMATION
  Report Type: 
  Country: None (occurrence: None)
  Receive Date: 20120612
  Receipt Date: 20120510
  Transmission Date: 20120825
  Serious: Yes (Other)
  Sender: FDA-Public Use
  Company Number: 2012P1024429

PATIENT
  Age: 17 Year
  Sex: Male
  Weight: 81.6475 kg

DRUGS (2)
  1. KEPPRA [Concomitant]
  2. LAMOTRIGINE [Suspect]
     Indication: EPILEPSY
     Dosage: 200 MG;QID
     Dates: start: 20110901, end: 20111201

REACTIONS (6)
  - GRAND MAL CONVULSION [None]
  - PRODUCT SUBSTITUTION ISSUE [None]
  - ANXIETY [None]
  - ANTICONVULSANT DRUG LEVEL BELOW THERAPEUTIC [None]
  - PRODUCT QUALITY ISSUE [None]
  - FATIGUE [None]
